FAERS Safety Report 7511095-0 (Version None)
Quarter: 2011Q2

REPORT INFORMATION
  Report Type: 
  Country: None (occurrence: None)
  Receive Date: 20110531
  Receipt Date: 20110517
  Transmission Date: 20111010
  Serious: Yes (Other)
  Sender: FDA-Public Use
  Company Number: FR-JNJFOC-20110408947

PATIENT
  Sex: Female

DRUGS (6)
  1. RISPERDAL [Suspect]
     Indication: PRODUCT USED FOR UNKNOWN INDICATION
     Route: 048
     Dates: start: 19940101
  2. IRBESARTAN [Concomitant]
  3. IPERTEN [Concomitant]
  4. OMEPRAZOLE [Concomitant]
  5. MEDIATOR [Suspect]
     Indication: DIABETES MELLITUS
     Route: 048
     Dates: start: 19970101, end: 20091001
  6. ALL OTHER THERAPEUTIC DRUG [Concomitant]

REACTIONS (5)
  - HYPERTENSION [None]
  - AORTIC VALVE INCOMPETENCE [None]
  - FATIGUE [None]
  - OEDEMA PERIPHERAL [None]
  - DYSPNOEA [None]
